FAERS Safety Report 21327822 (Version 1)
Quarter: 2022Q3

REPORT INFORMATION
  Report Type: Spontaneous
  Country: US (occurrence: None)
  Receive Date: 20220912
  Receipt Date: 20220912
  Transmission Date: 20221026
  Serious: Yes (Other)
  Sender: FDA-Public Use
  Company Number: None

PATIENT
  Age: 54 Year
  Sex: Female
  Weight: 103.5 kg

DRUGS (1)
  1. BEBTELOVIMAB [Suspect]
     Active Substance: BEBTELOVIMAB
     Indication: COVID-19 treatment

REACTIONS (6)
  - Dysgeusia [None]
  - Paraesthesia oral [None]
  - Paraesthesia oral [None]
  - Lip swelling [None]
  - Palatal swelling [None]
  - Oral pruritus [None]

NARRATIVE: CASE EVENT DATE: 20220912
